FAERS Safety Report 23906894 (Version 1)
Quarter: 2024Q2

REPORT INFORMATION
  Report Type: Spontaneous
  Country: CA (occurrence: CA)
  Receive Date: 20240528
  Receipt Date: 20240528
  Transmission Date: 20240715
  Serious: Yes (Other)
  Sender: FDA-Public Use
  Company Number: CA-AUROBINDO-AUR-APL-2024-026001

PATIENT
  Sex: Female
  Weight: 62 kg

DRUGS (2)
  1. METHOTREXATE [Suspect]
     Active Substance: METHOTREXATE
     Indication: Product used for unknown indication
     Dosage: 20 MILLIGRAM, EVERY WEEK
     Route: 058
  2. BENLYSTA [Suspect]
     Active Substance: BELIMUMAB
     Indication: Systemic lupus erythematosus
     Dosage: 600 MILLIGRAM, 1 EVERY 4 WEEKS
     Route: 065

REACTIONS (9)
  - Pharyngitis streptococcal [Recovered/Resolved]
  - Dyspnoea [Recovered/Resolved]
  - Fatigue [Recovered/Resolved]
  - Illness [Recovered/Resolved]
  - Oesophageal dilation procedure [Recovered/Resolved]
  - Oxygen saturation decreased [Recovered/Resolved]
  - Respiratory failure [Recovered/Resolved]
  - Systemic lupus erythematosus [Recovered/Resolved]
  - Therapeutic response shortened [Recovered/Resolved]
